FAERS Safety Report 4559596-1 (Version None)
Quarter: 2005Q1

REPORT INFORMATION
  Report Type: 
  Country: None (occurrence: None)
  Receive Date: 20050113
  Receipt Date: 20040817
  Transmission Date: 20050727
  Serious: Yes (Death)
  Sender: FDA-Public Use
  Company Number: 2004228593US

PATIENT
  Age: 37 Year
  Sex: Female

DRUGS (12)
  1. HALCION [Suspect]
     Dosage: 0.25 MG, QD
     Dates: end: 20020319
  2. DURAGESIC [Suspect]
     Indication: PAIN
     Dosage: 100 UG, TRANSDERMAL; SEE IMAGE
     Route: 062
     Dates: start: 20020219, end: 20020319
  3. DURAGESIC [Suspect]
     Indication: PAIN
     Dosage: 100 UG, TRANSDERMAL; SEE IMAGE
     Route: 062
     Dates: start: 20010101
  4. DURAGESIC [Suspect]
     Indication: PAIN
     Dosage: 100 UG, TRANSDERMAL; SEE IMAGE
     Route: 062
     Dates: start: 20020123
  5. DURAGESIC [Suspect]
     Indication: PAIN
     Dosage: 100 UG, TRANSDERMAL; SEE IMAGE
     Route: 062
     Dates: start: 20020205
  6. OXYCONTIN [Suspect]
     Indication: PAIN
     Dosage: 5 MG, TID
     Dates: end: 20020319
  7. VALIUM [Suspect]
     Dosage: 5 MG, QD
     Dates: end: 20020319
  8. INDERAL LA [Concomitant]
  9. LITHIUM CARBONATE [Concomitant]
  10. LUVOX [Concomitant]
  11. NEURONTIN [Concomitant]
  12. NORFLEX [Concomitant]

REACTIONS (1)
  - DRUG TOXICITY [None]
